APPROVED DRUG PRODUCT: TRIMETHOPRIM SULFATE AND POLYMYXIN B SULFATE
Active Ingredient: POLYMYXIN B SULFATE; TRIMETHOPRIM SULFATE
Strength: 10,000 UNITS/ML;EQ 1MG BASE/ML
Dosage Form/Route: SOLUTION/DROPS;OPHTHALMIC
Application: A064211 | Product #001 | TE Code: AT
Applicant: SANDOZ INC
Approved: Apr 13, 1998 | RLD: No | RS: Yes | Type: RX